FAERS Safety Report 7738546-0 (Version None)
Quarter: 2011Q3

REPORT INFORMATION
  Report Type: 
  Country: None (occurrence: None)
  Receive Date: 20110906
  Receipt Date: 20110822
  Transmission Date: 20111222
  Serious: Yes (Disabling)
  Sender: FDA-Public Use
  Company Number: AUR-APL-2011-04560

PATIENT
  Age: 54 Year
  Sex: Male

DRUGS (9)
  1. ISOPHANE INSULIN [Concomitant]
  2. METFORMIN HCL [Suspect]
     Indication: PRODUCT USED FOR UNKNOWN INDICATION
  3. FUROSEMIDE [Concomitant]
  4. ASPIRIN [Concomitant]
  5. POTASSIUM CHLORIDE [Concomitant]
  6. CRESTOR [Suspect]
     Indication: PRODUCT USED FOR UNKNOWN INDICATION
  7. ONGLYZA [Suspect]
     Indication: TYPE 2 DIABETES MELLITUS
     Dosage: 5 MG (5 MG, 1 IN 1 D), ORAL
     Route: 048
     Dates: start: 20101110, end: 20101204
  8. DIPYRIDAMOLE [Concomitant]
  9. DIGOXIN [Concomitant]

REACTIONS (5)
  - HEADACHE [None]
  - WEIGHT INCREASED [None]
  - FLUID RETENTION [None]
  - DISCOMFORT [None]
  - IMPAIRED WORK ABILITY [None]
